FAERS Safety Report 14307240 (Version 1)
Quarter: 2017Q4

REPORT INFORMATION
  Report Type: Spontaneous
  Country: US (occurrence: US)
  Receive Date: 20171219
  Receipt Date: 20171219
  Transmission Date: 20180321
  Serious: Yes (Life-Threatening, Hospitalization)
  Sender: FDA-Public Use
  Company Number: None

PATIENT
  Age: 76 Year
  Sex: Male
  Weight: 86.5 kg

DRUGS (2)
  1. ELIQUIS [Suspect]
     Active Substance: APIXABAN
     Indication: ATRIAL FIBRILLATION
     Route: 048
     Dates: start: 20170123, end: 20170522
  2. ASPIRIN. [Concomitant]
     Active Substance: ASPIRIN

REACTIONS (8)
  - Haematoma [None]
  - Skin haemorrhage [None]
  - Confusional state [None]
  - Cerebral haemorrhage [None]
  - Syncope [None]
  - Skin abrasion [None]
  - Fall [None]
  - Laceration [None]

NARRATIVE: CASE EVENT DATE: 20170522
